FAERS Safety Report 9950865 (Version 2)
Quarter: 2014Q1

REPORT INFORMATION
  Report Type: Report from Study
  Country: PR (occurrence: PR)
  Receive Date: 20140304
  Receipt Date: 20140304
  Transmission Date: 20141002
  Serious: No
  Sender: FDA-Public Use
  Company Number: PR-ABBVIE-12P-131-0901960-00

PATIENT
  Age: 72 Year
  Sex: Female
  Weight: 63.56 kg

DRUGS (7)
  1. HUMIRA [Suspect]
     Indication: PRODUCT USED FOR UNKNOWN INDICATION
     Route: 058
  2. METHOTREXATE [Concomitant]
     Indication: RHEUMATOID ARTHRITIS
     Dosage: ON WEDNSEDAY, THURSDAY, FRIDAY, SATURDAY
     Route: 048
  3. LEVOXYL [Concomitant]
     Indication: RHEUMATOID ARTHRITIS
     Route: 048
  4. TRANXEN [Concomitant]
     Indication: ANXIETY DISORDER
     Route: 048
  5. RELAFEN [Concomitant]
     Indication: PAIN
     Route: 048
  6. CALTRATE [Concomitant]
     Indication: VITAMIN SUPPLEMENTATION
     Route: 048
  7. CENTRUM SILVER [Concomitant]
     Indication: VITAMIN SUPPLEMENTATION
     Route: 048

REACTIONS (3)
  - Pruritus [Not Recovered/Not Resolved]
  - Nasopharyngitis [Not Recovered/Not Resolved]
  - Polyuria [Not Recovered/Not Resolved]
